FAERS Safety Report 9966180 (Version 1)
Quarter: 2014Q1

REPORT INFORMATION
  Report Type: Report from Study
  Country: US (occurrence: US)
  Receive Date: 20140305
  Receipt Date: 20140305
  Transmission Date: 20141002
  Serious: No
  Sender: FDA-Public Use
  Company Number: US-ABBVIE-13P-163-1123123-00

PATIENT
  Sex: Male

DRUGS (10)
  1. HUMIRA [Suspect]
     Indication: PSORIATIC ARTHROPATHY
     Dates: start: 20130626
  2. METHOCARBAMOL [Concomitant]
     Indication: MUSCLE RELAXANT THERAPY
     Dosage: AS NEEDED
  3. OXYCODONE [Concomitant]
     Indication: PAIN
     Dosage: AS NEEDED
  4. TRIAM HTZ [Concomitant]
     Indication: CARDIAC DISORDER
  5. ATENOLOL [Concomitant]
     Indication: CARDIAC DISORDER
  6. AMBIEN [Concomitant]
     Indication: INSOMNIA
     Dosage: AT BEDTIME
  7. LOVAZA [Concomitant]
     Indication: SUPPLEMENTATION THERAPY
     Dosage: 4 A DAY
  8. MAGNESIUM [Concomitant]
     Indication: MINERAL SUPPLEMENTATION
  9. NIACIN [Concomitant]
     Indication: SUPPLEMENTATION THERAPY
  10. MILK THISTLE [Concomitant]
     Indication: SUPPLEMENTATION THERAPY

REACTIONS (1)
  - Rash erythematous [Recovering/Resolving]
